FAERS Safety Report 22372658 (Version 1)
Quarter: 2023Q2

REPORT INFORMATION
  Report Type: Report from Study
  Country: US (occurrence: US)
  Receive Date: 20230526
  Receipt Date: 20230526
  Transmission Date: 20230721
  Serious: Yes (Death, Other)
  Sender: FDA-Public Use
  Company Number: US-TAKEDA-2023TUS006011

PATIENT
  Sex: Female
  Weight: 137 kg

DRUGS (1)
  1. BRIGATINIB [Suspect]
     Active Substance: BRIGATINIB
     Indication: Lung neoplasm malignant
     Dosage: 180 MILLIGRAM, QD
     Route: 048
     Dates: start: 20221126

REACTIONS (4)
  - Death [Fatal]
  - Gastrooesophageal reflux disease [Unknown]
  - Decreased appetite [Unknown]
  - Pain [Recovered/Resolved]
